FAERS Safety Report 9053786 (Version 1)
Quarter: 2013Q1

REPORT INFORMATION
  Report Type: Spontaneous
  Country: US (occurrence: None)
  Receive Date: 20130201
  Receipt Date: 20130201
  Transmission Date: 20140127
  Serious: Yes (Hospitalization)
  Sender: FDA-Public Use
  Company Number: None

PATIENT
  Age: 31 Year
  Sex: Female
  Weight: 107 kg

DRUGS (2)
  1. CLOMIPHENE CITRATE [Suspect]
     Indication: INFERTILITY
     Dosage: 50 MG 2 TABLETS ODX5DAYS PO
     Route: 048
     Dates: start: 20120701, end: 20121202
  2. TRAMADOL [Concomitant]

REACTIONS (2)
  - Pancreatitis acute [None]
  - Blood triglycerides increased [None]
